FAERS Safety Report 7513962-0 (Version None)
Quarter: 2011Q2

REPORT INFORMATION
  Report Type: 
  Country: None (occurrence: None)
  Receive Date: 20110531
  Receipt Date: 20110526
  Transmission Date: 20111010
  Serious: Yes (Death)
  Sender: FDA-Public Use
  Company Number: MA-PFIZER INC-2011110309

PATIENT
  Age: 51 Year
  Sex: Female

DRUGS (4)
  1. PREDNISONE [Suspect]
     Dosage: 10 MG, DAILY
     Route: 048
  2. CYCLOPHOSPHAMIDE [Suspect]
     Indication: VASCULITIS
     Dosage: MONTHLY PULSES
  3. METHYLPREDNISOLONE [Suspect]
     Indication: VASCULITIS
     Dosage: PULSE
  4. PREDNISONE [Suspect]
     Indication: VASCULITIS
     Dosage: 60 MG, DAILY
     Route: 048

REACTIONS (1)
  - KAPOSI'S SARCOMA [None]
